FAERS Safety Report 11538196 (Version 3)
Quarter: 2015Q4

REPORT INFORMATION
  Report Type: Spontaneous
  Country: US (occurrence: US)
  Receive Date: 20150922
  Receipt Date: 20151013
  Transmission Date: 20160304
  Serious: Yes (Death, Hospitalization, Other)
  Sender: FDA-Public Use
  Company Number: US-ACTELION-A-NJ2015-124086

PATIENT
  Age: 68 Year
  Sex: Female

DRUGS (9)
  1. METFORMIN [Concomitant]
     Active Substance: METFORMIN HYDROCHLORIDE
  2. ELIQUIS [Concomitant]
     Active Substance: APIXABAN
  3. SILDENAFIL. [Concomitant]
     Active Substance: SILDENAFIL
  4. ACETYLCYSTEINE. [Concomitant]
     Active Substance: ACETYLCYSTEINE
  5. LANTUS [Concomitant]
     Active Substance: INSULIN GLARGINE
  6. HUMALOG [Concomitant]
     Active Substance: INSULIN LISPRO
  7. OPSUMIT [Suspect]
     Active Substance: MACITENTAN
     Indication: PULMONARY ARTERIAL HYPERTENSION
     Dosage: 10 MG, UNK
     Route: 048
     Dates: start: 20141218, end: 201509
  8. ZETIA [Concomitant]
     Active Substance: EZETIMIBE
  9. SYNTHROID [Concomitant]
     Active Substance: LEVOTHYROXINE SODIUM

REACTIONS (4)
  - Terminal state [Not Recovered/Not Resolved]
  - Loss of consciousness [Unknown]
  - Fall [Not Recovered/Not Resolved]
  - Retroperitoneal haemorrhage [Fatal]

NARRATIVE: CASE EVENT DATE: 20150901
